FAERS Safety Report 23433328 (Version 3)
Quarter: 2024Q1

REPORT INFORMATION
  Report Type: Report from Study
  Country: EG (occurrence: EG)
  Receive Date: 20240123
  Receipt Date: 20240221
  Transmission Date: 20240410
  Serious: Yes (Disabling)
  Sender: FDA-Public Use
  Company Number: EG-002147023-NVSC2024EG010584

PATIENT
  Age: 47 Year
  Sex: Female

DRUGS (7)
  1. KISQALI [Suspect]
     Active Substance: RIBOCICLIB
     Indication: Breast cancer metastatic
     Dosage: 1 DOSAGE FORM, TID
     Route: 048
     Dates: start: 20231220
  2. ZOMETA [Suspect]
     Active Substance: ZOLEDRONIC ACID
     Indication: Breast cancer metastatic
     Dosage: UNK (1 INJECTION EVERY 28 DAYS) (INFUSION)
     Route: 065
     Dates: start: 20231217
  3. AROMASIN [Concomitant]
     Active Substance: EXEMESTANE
     Indication: Breast cancer metastatic
     Dosage: 25 MG, QD (1 TABLET)
     Route: 065
     Dates: start: 20231220
  4. AMLODIPINE BESYLATE [Concomitant]
     Active Substance: AMLODIPINE BESYLATE
     Indication: Hypertension
     Dosage: 5 MG (1 TABLET BEFORE BREAKFAST)
     Route: 065
     Dates: start: 202204
  5. NEBIVOLOL HYDROCHLORIDE [Concomitant]
     Active Substance: NEBIVOLOL HYDROCHLORIDE
     Indication: Hypertension
     Dosage: 5 MG (1 TABLET BEFORE DINNER)
     Route: 065
     Dates: start: 202204
  6. SERETIDE [Concomitant]
     Active Substance: FLUTICASONE PROPIONATE\SALMETEROL XINAFOATE
     Indication: Pneumonitis
     Dosage: 12.5 MG (1 PUFF EVERY 12 HRS)
     Route: 065
     Dates: start: 202110
  7. FILGRASTIM [Concomitant]
     Active Substance: FILGRASTIM
     Indication: Immune system disorder
     Dosage: QD, ONCE PER DAY FOR 3 DAYS DURING KISQALI  WEEK OF
     Route: 065
     Dates: start: 20240111

REACTIONS (21)
  - Gastrointestinal pain [Recovered/Resolved]
  - Pain in extremity [Recovered/Resolved]
  - Peripheral swelling [Recovered/Resolved]
  - Diarrhoea [Recovered/Resolved]
  - Headache [Recovered/Resolved]
  - Erythema [Recovered/Resolved]
  - Ocular hyperaemia [Recovering/Resolving]
  - Eye pruritus [Recovering/Resolving]
  - Diplopia [Recovering/Resolving]
  - Renal pain [Recovered/Resolved]
  - Bladder pain [Recovered/Resolved]
  - Fatigue [Recovered/Resolved]
  - Insomnia [Recovering/Resolving]
  - Somnolence [Recovering/Resolving]
  - Depression [Recovering/Resolving]
  - Nervousness [Recovering/Resolving]
  - Tension [Recovering/Resolving]
  - Libido decreased [Recovering/Resolving]
  - Decreased appetite [Recovering/Resolving]
  - Alopecia [Recovering/Resolving]
  - Blood calcium decreased [Unknown]

NARRATIVE: CASE EVENT DATE: 20231220
